FAERS Safety Report 8957571 (Version 2)
Quarter: 2013Q1

REPORT INFORMATION
  Report Type: Spontaneous
  Country: US (occurrence: US)
  Receive Date: 20121210
  Receipt Date: 20130129
  Transmission Date: 20140127
  Serious: No
  Sender: FDA-Public Use
  Company Number: US-TEVA-370101USA

PATIENT
  Age: 49 None
  Sex: Female
  Weight: 88.53 kg

DRUGS (2)
  1. PARAGARD 380A [Suspect]
     Indication: CONTRACEPTION
     Route: 015
     Dates: start: 20080828, end: 20121112
  2. VITAMIN D [Concomitant]

REACTIONS (4)
  - Device expulsion [Not Recovered/Not Resolved]
  - Medical device complication [Not Recovered/Not Resolved]
  - Metrorrhagia [Unknown]
  - Dyspareunia [Unknown]
